FAERS Safety Report 25058018 (Version 1)
Quarter: 2025Q1

REPORT INFORMATION
  Report Type: Spontaneous
  Country: GB (occurrence: GB)
  Receive Date: 20250310
  Receipt Date: 20250310
  Transmission Date: 20250409
  Serious: Yes (Other)
  Sender: ABBVIE
  Company Number: None

PATIENT
  Age: 43 Year
  Sex: Male

DRUGS (1)
  1. ATOGEPANT [Suspect]
     Active Substance: ATOGEPANT
     Indication: Migraine
     Dosage: AT NIGHT
     Route: 048
     Dates: start: 20241223

REACTIONS (2)
  - Raynaud^s phenomenon [Not Recovered/Not Resolved]
  - Limb injury [Not Recovered/Not Resolved]
